FAERS Safety Report 15349303 (Version 3)
Quarter: 2018Q3

REPORT INFORMATION
  Report Type: Report from Study
  Country: FR (occurrence: FR)
  Receive Date: 20180904
  Receipt Date: 20180927
  Transmission Date: 20181010
  Serious: Yes (Hospitalization)
  Sender: FDA-Public Use
  Company Number: FR-PFIZER INC-2018308747

PATIENT
  Age: 69 Year
  Sex: Male
  Weight: 72 kg

DRUGS (16)
  1. AVELUMAB [Suspect]
     Active Substance: AVELUMAB
     Dosage: 670 MG, CYCLIC (EVERY 2 WEEKS)
     Route: 042
  2. AVELUMAB [Suspect]
     Active Substance: AVELUMAB
     Dosage: CYCLIC (EVERY 2 WEEKS)
     Route: 042
  3. AVELUMAB [Suspect]
     Active Substance: AVELUMAB
     Indication: OESOPHAGEAL ADENOCARCINOMA
     Dosage: 670 MG, CYCLIC (EVERY 2 WEEKS)
     Route: 042
     Dates: start: 20180219
  4. AVELUMAB [Suspect]
     Active Substance: AVELUMAB
     Dosage: CYCLIC (EVERY 2 WEEKS)
     Route: 042
  5. PYOSTACINE [Concomitant]
     Active Substance: PRISTINAMYCIN
     Indication: DEVICE RELATED INFECTION
     Dosage: 1000 MG, 1X/DAY
     Route: 048
     Dates: start: 20180405, end: 20180405
  6. OXALIPLATIN. [Suspect]
     Active Substance: OXALIPLATIN
     Indication: OESOPHAGEAL ADENOCARCINOMA
     Dosage: 161 MG, CYCLIC (EVERY 2 WEEKS)
     Route: 042
     Dates: start: 20171113
  7. FLUOROURACIL. [Suspect]
     Active Substance: FLUOROURACIL
     Dosage: 4900 MG, CYCLIC (EVERY 2 WEEKS)
     Route: 042
     Dates: end: 20180131
  8. OXALIPLATIN. [Suspect]
     Active Substance: OXALIPLATIN
     Dosage: 161 MG, CYCLIC (EVERY 2 WEEKS)
     Route: 042
     Dates: end: 20180131
  9. AVELUMAB [Suspect]
     Active Substance: AVELUMAB
     Dosage: CYCLIC (EVERY 2 WEEKS)
     Route: 042
     Dates: start: 20180517
  10. OXALIPLATIN. [Suspect]
     Active Substance: OXALIPLATIN
     Dosage: 161 MG, CYCLIC (EVERY 2 WEEKS)
     Route: 042
  11. OXALIPLATIN. [Suspect]
     Active Substance: OXALIPLATIN
     Dosage: 161 MG, CYCLIC (EVERY 2 WEEKS)
     Route: 042
  12. AVELUMAB [Suspect]
     Active Substance: AVELUMAB
     Dosage: 670 MG, CYCLIC (EVERY 2 WEEKS)
     Route: 042
     Dates: end: 20180419
  13. FLUOROURACIL. [Suspect]
     Active Substance: FLUOROURACIL
     Indication: OESOPHAGEAL ADENOCARCINOMA
     Dosage: 4900 MG, CYCLIC (EVERY 2 WEEKS)
     Route: 042
     Dates: start: 20171113
  14. AVELUMAB [Suspect]
     Active Substance: AVELUMAB
     Dosage: 670 MG, CYCLIC (EVERY 2 WEEKS)
     Route: 042
  15. AVELUMAB [Suspect]
     Active Substance: AVELUMAB
     Dosage: CYCLIC (EVERY 2 WEEKS)
     Route: 042
  16. LEUCOVORIN /00566701/ [Concomitant]
     Active Substance: LEUCOVORIN
     Indication: OESOPHAGEAL ADENOCARCINOMA
     Dosage: 100 MG/M2, CYCLIC (EVERY 2 WEEKS)
     Route: 042
     Dates: start: 20171113, end: 20180131

REACTIONS (1)
  - Device related infection [Recovered/Resolved]

NARRATIVE: CASE EVENT DATE: 20180424
